FAERS Safety Report 7405217-X (Version None)
Quarter: 2011Q2

REPORT INFORMATION
  Report Type: 
  Country: None (occurrence: None)
  Receive Date: 20110411
  Receipt Date: 20110216
  Transmission Date: 20111010
  Serious: Yes (Hospitalization, Other)
  Sender: FDA-Public Use
  Company Number: US-BAYER-201029651NA

PATIENT
  Age: 17 Year
  Sex: Female
  Weight: 125 kg

DRUGS (5)
  1. YAZ [Suspect]
     Indication: ACNE
  2. YASMIN [Suspect]
     Indication: ACNE
  3. PREVACID [Concomitant]
     Indication: GASTROOESOPHAGEAL REFLUX DISEASE
     Dosage: UNK MG, UNK
     Route: 048
  4. YASMIN [Suspect]
     Indication: CONTRACEPTION
     Dosage: UNK
     Dates: start: 20081101, end: 20081201
  5. YAZ [Suspect]
     Indication: CONTRACEPTION
     Dates: start: 20081101, end: 20081215

REACTIONS (3)
  - DEEP VEIN THROMBOSIS [None]
  - RIB EXCISION [None]
  - SUBCLAVIAN VEIN THROMBOSIS [None]
